FAERS Safety Report 18090960 (Version 1)
Quarter: 2020Q3

REPORT INFORMATION
  Report Type: Spontaneous
  Country: US (occurrence: US)
  Receive Date: 20200729
  Receipt Date: 20200729
  Transmission Date: 20201103
  Serious: Yes (Other)
  Sender: FDA-Public Use
  Company Number: None

PATIENT
  Age: 59 Year
  Sex: Female
  Weight: 52.2 kg

DRUGS (3)
  1. HAND SANITIZER TRILLIUM [Suspect]
     Active Substance: ALCOHOL
  2. GREENERWAYS HAND SANITIZER GEL ? UNSCENTED [Suspect]
     Active Substance: ALCOHOL
  3. ASSURED HAND SANITIZER 8OZ [Suspect]
     Active Substance: ALCOHOL
     Indication: INFECTION PROPHYLAXIS
     Dosage: ?          OTHER FREQUENCY:ALL DAY;?
     Route: 061

REACTIONS (5)
  - Suspected product quality issue [None]
  - Pruritus [None]
  - Skin disorder [None]
  - Scar [None]
  - Rash [None]

NARRATIVE: CASE EVENT DATE: 20200404
